FAERS Safety Report 5341640-5 (Version None)
Quarter: 2007Q2

REPORT INFORMATION
  Report Type: 
  Country: None (occurrence: None)
  Receive Date: 20070530
  Receipt Date: 20070516
  Transmission Date: 20071010
  Serious: Yes (Death)
  Sender: FDA-Public Use
  Company Number: 2007AL001996

PATIENT
  Age: 30 Year
  Sex: Male

DRUGS (5)
  1. CITALOPRAM HYDROBROMIDE [Suspect]
     Dosage: PO
     Route: 048
  2. DINITROPHENOL [Concomitant]
  3. OLANZAPINE [Concomitant]
  4. FLURAZEPAM [Concomitant]
  5. NORDAZEPAM [Concomitant]

REACTIONS (2)
  - PULMONARY OEDEMA [None]
  - VISCERAL CONGESTION [None]
